FAERS Safety Report 18636875 (Version 1)
Quarter: 2020Q4

REPORT INFORMATION
  Report Type: Spontaneous
  Country: NO (occurrence: NO)
  Receive Date: 20201219
  Receipt Date: 20201219
  Transmission Date: 20210114
  Serious: Yes (Hospitalization)
  Sender: FDA-Public Use
  Company Number: NO-CELLTRION INC.-2020NO033777

PATIENT

DRUGS (3)
  1. REMSIMA [Suspect]
     Active Substance: INFLIXIMAB
     Indication: SPONDYLOARTHROPATHY
     Dosage: 400 MG
     Route: 042
     Dates: start: 20181213
  2. REMSIMA [Suspect]
     Active Substance: INFLIXIMAB
     Dosage: 400 MG
     Route: 042
     Dates: start: 20190711
  3. REMSIMA [Suspect]
     Active Substance: INFLIXIMAB
     Dosage: 400 MG
     Route: 042
     Dates: start: 20190627

REACTIONS (11)
  - Nerve compression [Recovering/Resolving]
  - Pruritus [Recovering/Resolving]
  - Drug specific antibody present [Recovering/Resolving]
  - Off label use [Unknown]
  - Hypoaesthesia [Recovered/Resolved]
  - Underdose [Unknown]
  - Median nerve injury [Recovering/Resolving]
  - Infusion related reaction [Recovering/Resolving]
  - Vomiting [Recovered/Resolved]
  - Myalgia [Recovered/Resolved]
  - Infusion site oedema [Recovering/Resolving]

NARRATIVE: CASE EVENT DATE: 2019
